FAERS Safety Report 7110529-3 (Version None)
Quarter: 2010Q4

REPORT INFORMATION
  Report Type: 
  Country: None (occurrence: None)
  Receive Date: 20101118
  Receipt Date: 20101105
  Transmission Date: 20110411
  Serious: Yes (Other)
  Sender: FDA-Public Use
  Company Number: US-ACTELION-A-US2010-38371

PATIENT

DRUGS (11)
  1. BOSENTAN TABLET 62.5 MG US [Suspect]
     Indication: PULMONARY ARTERIAL HYPERTENSION
     Dosage: 62.5 MG, BID
     Route: 048
     Dates: start: 20100702, end: 20100722
  2. NEXIUM [Concomitant]
  3. VITAMIN B COMPLEX CAP [Concomitant]
  4. FUROSEMIDE [Concomitant]
  5. ACTONEL [Concomitant]
  6. ASPIRIN [Concomitant]
  7. MULTI-VITAMIN [Concomitant]
  8. DRONEDARONE HCL [Concomitant]
  9. DIAZEPAM [Concomitant]
  10. POTASSIUM CHLORIDE [Concomitant]
  11. PLAVIX [Concomitant]

REACTIONS (13)
  - ASTHENIA [None]
  - CHEST PAIN [None]
  - CHILLS [None]
  - CONDITION AGGRAVATED [None]
  - COUGH [None]
  - DIZZINESS [None]
  - DYSPNOEA [None]
  - NO THERAPEUTIC RESPONSE [None]
  - OEDEMA [None]
  - PALPITATIONS [None]
  - PULMONARY ARTERIAL HYPERTENSION [None]
  - SINUSITIS [None]
  - SOMNOLENCE [None]
